FAERS Safety Report 18630291 (Version 4)
Quarter: 2021Q1

REPORT INFORMATION
  Report Type: Report from Study
  Country: US (occurrence: US)
  Receive Date: 20201217
  Receipt Date: 20210115
  Transmission Date: 20210419
  Serious: Yes (Other)
  Sender: FDA-Public Use
  Company Number: US-PFIZER INC-2020326655

PATIENT
  Age: 62 Year
  Sex: Female

DRUGS (6)
  1. XELJANZ [Suspect]
     Active Substance: TOFACITINIB CITRATE
     Dosage: 5 MG
     Dates: start: 202012
  2. ALLOPURINOL. [Concomitant]
     Active Substance: ALLOPURINOL
     Dosage: UNK
  3. HYDROCODONE [Concomitant]
     Active Substance: HYDROCODONE
     Dosage: UNK
  4. XELJANZ [Suspect]
     Active Substance: TOFACITINIB CITRATE
     Dosage: 5 MG
     Dates: start: 202008, end: 2020
  5. METHADONE [Concomitant]
     Active Substance: METHADONE HYDROCHLORIDE
     Dosage: UNK
  6. GABAPENTIN. [Concomitant]
     Active Substance: GABAPENTIN
     Dosage: UNK

REACTIONS (14)
  - Stress [Unknown]
  - Blood urine present [Unknown]
  - Kidney infection [Unknown]
  - Urinary tract infection [Unknown]
  - Dysuria [Not Recovered/Not Resolved]
  - Arthralgia [Unknown]
  - Sensitivity to weather change [Unknown]
  - Eye disorder [Unknown]
  - Malaise [Unknown]
  - Balance disorder [Unknown]
  - Condition aggravated [Unknown]
  - Crying [Unknown]
  - Nephrolithiasis [Unknown]
  - Depression [Unknown]

NARRATIVE: CASE EVENT DATE: 2020
